FAERS Safety Report 8805228 (Version 1)
Quarter: 2012Q4

REPORT INFORMATION
  Report Type: Spontaneous
  Country: US (occurrence: None)
  Receive Date: 20120919
  Receipt Date: 20120919
  Transmission Date: 20130627
  Serious: Yes (Other)
  Sender: FDA-Public Use
  Company Number: None

PATIENT
  Age: 45 Year
  Sex: Female

DRUGS (1)
  1. MONTELUKAST [Suspect]
     Indication: ALLERGIC RHINITIS
     Dosage: 1
     Route: 048
     Dates: start: 20120828

REACTIONS (3)
  - Chest discomfort [None]
  - Bronchospasm [None]
  - Panic attack [None]
